FAERS Safety Report 21092160 (Version 1)
Quarter: 2022Q3

REPORT INFORMATION
  Report Type: Spontaneous
  Country: KE (occurrence: KE)
  Receive Date: 20220718
  Receipt Date: 20220718
  Transmission Date: 20221027
  Serious: Yes (Other)
  Sender: FDA-Public Use
  Company Number: KE-GILEAD-2022-0589351

PATIENT

DRUGS (1)
  1. HARVONI [Suspect]
     Active Substance: LEDIPASVIR\SOFOSBUVIR
     Indication: Hepatitis C
     Route: 065

REACTIONS (6)
  - COVID-19 pneumonia [Unknown]
  - Renal failure [Not Recovered/Not Resolved]
  - Ascites [Not Recovered/Not Resolved]
  - Steatohepatitis [Unknown]
  - Dependence on oxygen therapy [Not Recovered/Not Resolved]
  - Pleural effusion [Unknown]
